FAERS Safety Report 6287702-X (Version None)
Quarter: 2009Q3

REPORT INFORMATION
  Report Type: 
  Country: None (occurrence: None)
  Receive Date: 20090717
  Receipt Date: 20090421
  Transmission Date: 20100115
  Serious: Yes (Other)
  Sender: FDA-Public Use
  Company Number: 2009SP008583

PATIENT
  Age: 50 Year
  Sex: Male

DRUGS (1)
  1. INTEGRILIN [Suspect]
     Indication: STENT PLACEMENT

REACTIONS (2)
  - EPISTAXIS [None]
  - VOMITING [None]
